FAERS Safety Report 18587187 (Version 1)
Quarter: 2020Q4

REPORT INFORMATION
  Report Type: Spontaneous
  Country: US (occurrence: US)
  Receive Date: 20201207
  Receipt Date: 20201207
  Transmission Date: 20210114
  Serious: No
  Sender: FDA-Public Use
  Company Number: US-ROCHE-2655214

PATIENT
  Sex: Female

DRUGS (4)
  1. ASPIRIN 81 [Concomitant]
     Active Substance: ASPIRIN
  2. VALIUM [Suspect]
     Active Substance: DIAZEPAM
     Indication: NERVOUS SYSTEM DISORDER
     Route: 065
  3. VALIUM [Suspect]
     Active Substance: DIAZEPAM
     Indication: INSOMNIA
  4. VALIUM [Suspect]
     Active Substance: DIAZEPAM
     Indication: MUSCLE RELAXANT THERAPY

REACTIONS (5)
  - Off label use [Unknown]
  - Somnolence [Unknown]
  - Pain [Unknown]
  - Malaise [Unknown]
  - Intentional product use issue [Unknown]
